FAERS Safety Report 5855632-0 (Version None)
Quarter: 2008Q3

REPORT INFORMATION
  Report Type: 
  Country: None (occurrence: None)
  Receive Date: 20080823
  Receipt Date: 20080812
  Transmission Date: 20090109
  Serious: Yes (Hospitalization, Other)
  Sender: FDA-Public Use
  Company Number: PHEH2008US07038

PATIENT
  Sex: Female
  Weight: 174 kg

DRUGS (5)
  1. AREDIA [Suspect]
     Dosage: UNK, UNK
  2. ZOMETA [Suspect]
     Dosage: UNK, UNK
  3. RADIATION THERAPY [Suspect]
     Dosage: 3250CGYS/TOTAL
     Dates: start: 20060403, end: 20060419
  4. RADIATION THERAPY [Suspect]
     Dosage: 3000CGYS / TOTAL
     Dates: start: 20060424, end: 20060512
  5. RADIATION THERAPY [Suspect]
     Dosage: 3000CGYS / TOTAL
     Dates: start: 20060620, end: 20060704

REACTIONS (17)
  - ACUTE SINUSITIS [None]
  - BONE NEOPLASM MALIGNANT [None]
  - BONE PAIN [None]
  - CHRONIC SINUSITIS [None]
  - HOSPITALISATION [None]
  - HYPERCALCAEMIA [None]
  - INFLAMMATION [None]
  - ORAL DISORDER [None]
  - OSTEONECROSIS [None]
  - PAIN IN JAW [None]
  - PANCYTOPENIA [None]
  - RENAL FAILURE [None]
  - RIB FRACTURE [None]
  - SEPSIS [None]
  - SINUS DISORDER [None]
  - VERTEBROPLASTY [None]
  - WOUND DRAINAGE [None]
